FAERS Safety Report 7934179-1 (Version None)
Quarter: 2011Q4

REPORT INFORMATION
  Report Type: 
  Country: None (occurrence: None)
  Receive Date: 20111122
  Receipt Date: 20111115
  Transmission Date: 20120403
  Serious: Yes (Other)
  Sender: FDA-Public Use
  Company Number: CA-JNJFOC-20111107061

PATIENT
  Sex: Male
  Weight: 85 kg

DRUGS (4)
  1. REMICADE [Suspect]
     Indication: COLITIS ULCERATIVE
     Route: 042
     Dates: start: 20100101, end: 20111115
  2. PANTOPRAZOLE SODIUM [Concomitant]
  3. ASACOL [Concomitant]
  4. MESALAMINE [Concomitant]

REACTIONS (1)
  - ADVERSE DRUG REACTION [None]
